FAERS Safety Report 11294548 (Version 1)
Quarter: 2015Q3

REPORT INFORMATION
  Report Type: Spontaneous
  Country: US (occurrence: None)
  Receive Date: 20150722
  Receipt Date: 20150722
  Transmission Date: 20151125
  Serious: Yes (Other)
  Sender: FDA-Public Use
  Company Number: None

PATIENT
  Age: 67 Year
  Sex: Male
  Weight: 92.3 kg

DRUGS (2)
  1. CLOZARIL [Suspect]
     Active Substance: CLOZAPINE
     Indication: SCHIZOPHRENIA, PARANOID TYPE
     Route: 048
     Dates: start: 20030409
  2. CINACALCET [Suspect]
     Active Substance: CINACALCET
     Route: 048
     Dates: start: 20150606, end: 20150612

REACTIONS (6)
  - Confusional state [None]
  - Tachycardia [None]
  - Abnormal behaviour [None]
  - Bradycardia [None]
  - Urinary retention [None]
  - Sedation [None]

NARRATIVE: CASE EVENT DATE: 20150612
